FAERS Safety Report 8037076-9 (Version None)
Quarter: 2012Q1

REPORT INFORMATION
  Report Type: 
  Country: None (occurrence: None)
  Receive Date: 20120111
  Receipt Date: 20120109
  Transmission Date: 20120608
  Serious: Yes (Hospitalization)
  Sender: FDA-Public Use
  Company Number: US-GLAXOSMITHKLINE-A0941892A

PATIENT
  Age: 73 Year
  Sex: Male

DRUGS (1)
  1. AVANDIA [Suspect]
     Indication: DIABETES MELLITUS
     Dosage: 4MG TWICE PER DAY
     Route: 048
     Dates: start: 20000701, end: 20100501

REACTIONS (6)
  - ARRHYTHMIA [None]
  - SLEEP DISORDER [None]
  - ACUTE CORONARY SYNDROME [None]
  - CATHETERISATION CARDIAC [None]
  - TACHYCARDIA [None]
  - MYOCARDIAL INFARCTION [None]
